FAERS Safety Report 23457544 (Version 1)
Quarter: 2024Q1

REPORT INFORMATION
  Report Type: Spontaneous
  Country: AU (occurrence: AU)
  Receive Date: 20240130
  Receipt Date: 20240130
  Transmission Date: 20240410
  Serious: Yes (Hospitalization, Other)
  Sender: FDA-Public Use
  Company Number: AU-SANDOZ-SDZ2024AU008118

PATIENT
  Age: 20 Year
  Sex: Male
  Weight: 68 kg

DRUGS (2)
  1. CYCLOPHOSPHAMIDE [Suspect]
     Active Substance: CYCLOPHOSPHAMIDE
     Indication: Lymphodepletion
     Dosage: 1000 MG/M2, QD
     Route: 042
     Dates: start: 20231128
  2. FLUDARABINE [Suspect]
     Active Substance: FLUDARABINE PHOSPHATE
     Indication: Lymphodepletion
     Dosage: 30 MG/M2, QD
     Route: 042
     Dates: start: 20231128

REACTIONS (1)
  - Sepsis [Not Recovered/Not Resolved]

NARRATIVE: CASE EVENT DATE: 20240106
